FAERS Safety Report 17070232 (Version 1)
Quarter: 2019Q4

REPORT INFORMATION
  Report Type: Spontaneous
  Country: JP (occurrence: JP)
  Receive Date: 20191125
  Receipt Date: 20191125
  Transmission Date: 20200122
  Serious: Yes (Hospitalization)
  Sender: FDA-Public Use
  Company Number: JP-TEVA-2019-JP-008514J

PATIENT
  Age: 53 Year
  Sex: Female

DRUGS (1)
  1. FAMOTIDINE OD TABLET 20MG ^TEVA^ [Suspect]
     Active Substance: FAMOTIDINE
     Indication: PRODUCT USED FOR UNKNOWN INDICATION
     Route: 065
     Dates: start: 201812, end: 201812

REACTIONS (1)
  - Erythema multiforme [Unknown]
